FAERS Safety Report 25432559 (Version 2)
Quarter: 2025Q2

REPORT INFORMATION
  Report Type: Report from Study
  Country: CO (occurrence: CO)
  Receive Date: 20250613
  Receipt Date: 20250623
  Transmission Date: 20250716
  Serious: Yes (Other)
  Sender: AKCEA THERAPEUTICS
  Company Number: CO-AKCEA THERAPEUTICS, INC.-2025IS001703

PATIENT

DRUGS (1)
  1. TEGSEDI [Suspect]
     Active Substance: INOTERSEN SODIUM
     Indication: Hereditary neuropathic amyloidosis
     Dosage: 284 MILLIGRAM, QW
     Route: 058
     Dates: start: 20220603

REACTIONS (5)
  - Myocarditis [Unknown]
  - Chest pain [Recovered/Resolved]
  - Suffocation feeling [Recovering/Resolving]
  - Dyspnoea [Recovered/Resolved]
  - Choking sensation [Not Recovered/Not Resolved]

NARRATIVE: CASE EVENT DATE: 20250528
